FAERS Safety Report 12291067 (Version 1)
Quarter: 2016Q2

REPORT INFORMATION
  Report Type: Spontaneous
  Country: GB (occurrence: GB)
  Receive Date: 20160421
  Receipt Date: 20160421
  Transmission Date: 20160815
  Serious: Yes (Other)
  Sender: FDA-Public Use
  Company Number: GB-ALIMERA SCIENCES, INC.-1050835

PATIENT
  Age: 48 Year
  Sex: Female

DRUGS (1)
  1. ILUVIEN [Suspect]
     Active Substance: FLUOCINOLONE ACETONIDE
     Indication: DIABETIC RETINAL OEDEMA
     Route: 031
     Dates: start: 20141005

REACTIONS (2)
  - Endophthalmitis [None]
  - Device material opacification [None]

NARRATIVE: CASE EVENT DATE: 201509
